FAERS Safety Report 5235434-9 (Version None)
Quarter: 2007Q1

REPORT INFORMATION
  Report Type: 
  Country: None (occurrence: None)
  Receive Date: 20070212
  Receipt Date: 20070207
  Transmission Date: 20070707
  Serious: Yes (Death)
  Sender: FDA-Public Use
  Company Number: IT-BRISTOL-MYERS SQUIBB COMPANY-13650841

PATIENT
  Age: 72 Year
  Sex: Female

DRUGS (4)
  1. DASATINIB [Suspect]
     Indication: BLAST CELL CRISIS
     Route: 048
     Dates: start: 20061030, end: 20061221
  2. METHOTREXATE [Suspect]
     Indication: BLAST CELL CRISIS
     Dates: start: 20061228
  3. ETOPOSIDE [Suspect]
     Indication: BLAST CELL CRISIS
     Dates: start: 20061228
  4. PREDNISOLONE [Suspect]
     Indication: BLAST CELL CRISIS
     Dates: start: 20061228

REACTIONS (1)
  - HEPATIC FAILURE [None]
